FAERS Safety Report 11253481 (Version 1)
Quarter: 2015Q3

REPORT INFORMATION
  Report Type: Spontaneous
  Country: CR (occurrence: CR)
  Receive Date: 20150709
  Receipt Date: 20150709
  Transmission Date: 20151125
  Serious: Yes (Death)
  Sender: FDA-Public Use
  Company Number: CR-ROCHE-1605528

PATIENT
  Age: 29 Year
  Sex: Female
  Weight: 68 kg

DRUGS (3)
  1. AVASTIN [Suspect]
     Active Substance: BEVACIZUMAB
     Indication: CERVIX CARCINOMA
     Route: 042
     Dates: start: 20150603, end: 20150603
  2. TAXOL [Concomitant]
     Active Substance: PACLITAXEL
     Indication: CERVIX CARCINOMA
     Route: 042
     Dates: start: 20150603
  3. CISPLATIN. [Concomitant]
     Active Substance: CISPLATIN
     Indication: CERVIX CARCINOMA
     Route: 042
     Dates: start: 20150603

REACTIONS (2)
  - Distributive shock [Fatal]
  - Disseminated intravascular coagulation [Fatal]
